FAERS Safety Report 5711230-0 (Version None)
Quarter: 2008Q2

REPORT INFORMATION
  Report Type: 
  Country: None (occurrence: None)
  Receive Date: 20080421
  Receipt Date: 20080408
  Transmission Date: 20081010
  Serious: Yes (Other)
  Sender: FDA-Public Use
  Company Number: AU-SOLVAY-00308001556

PATIENT
  Age: 27391 Day
  Sex: Male

DRUGS (2)
  1. TESTOGEL [Suspect]
     Indication: PRIMARY HYPOGONADISM
     Dosage: DAILY DOSE:  UNKNOWN
     Route: 062
  2. REANDRON [Concomitant]
     Indication: DRUG USE FOR UNKNOWN INDICATION
     Dosage: DAILY DOSE:  UNKNOWN
     Route: 065

REACTIONS (2)
  - ANGIOEDEMA [None]
  - SWELLING [None]
